FAERS Safety Report 16625336 (Version 1)
Quarter: 2019Q3

REPORT INFORMATION
  Report Type: Spontaneous
  Country: US (occurrence: US)
  Receive Date: 20190724
  Receipt Date: 20190724
  Transmission Date: 20191004
  Serious: No
  Sender: FDA-Public Use
  Company Number: US-PFIZER INC-2019313286

PATIENT
  Age: 63 Year

DRUGS (1)
  1. LYRICA [Suspect]
     Active Substance: PREGABALIN
     Dosage: UNK
     Dates: start: 2015

REACTIONS (3)
  - Chills [Unknown]
  - Withdrawal syndrome [Unknown]
  - Hyperhidrosis [Unknown]
